FAERS Safety Report 24915899 (Version 1)
Quarter: 2025Q1

REPORT INFORMATION
  Report Type: Spontaneous
  Country: CO (occurrence: CO)
  Receive Date: 20250203
  Receipt Date: 20250203
  Transmission Date: 20250408
  Serious: Yes (Other)
  Sender: CHIESI
  Company Number: CO-CHIESI-2025CHF00602

PATIENT
  Sex: Female

DRUGS (1)
  1. MYALEPT [Suspect]
     Active Substance: METRELEPTIN
     Indication: Congenital generalised lipodystrophy
     Route: 058
     Dates: start: 20181117

REACTIONS (4)
  - Syncope [Unknown]
  - Visual impairment [Unknown]
  - Chest pain [Unknown]
  - Dyspnoea [Unknown]
